FAERS Safety Report 7534017-5 (Version None)
Quarter: 2011Q2

REPORT INFORMATION
  Report Type: 
  Country: None (occurrence: None)
  Receive Date: 20110608
  Receipt Date: 20060822
  Transmission Date: 20111010
  Serious: Yes (Death)
  Sender: FDA-Public Use
  Company Number: PHNR2006AU00929

PATIENT
  Sex: Male

DRUGS (1)
  1. CLOZAPINE [Suspect]
     Indication: SCHIZOTYPAL PERSONALITY DISORDER
     Dosage: 25-75 MG DAILY
     Route: 048
     Dates: start: 20050720, end: 20060621

REACTIONS (2)
  - INJURY [None]
  - DROWNING [None]
